FAERS Safety Report 9780137 (Version 2)
Quarter: 2013Q4

REPORT INFORMATION
  Report Type: Spontaneous
  Country: CH (occurrence: CH)
  Receive Date: 20131223
  Receipt Date: 20131223
  Transmission Date: 20140711
  Serious: Yes (Death, Other)
  Sender: FDA-Public Use
  Company Number: CH-ABBVIE-92P-151-0062124-00

PATIENT
  Age: 21 Year
  Sex: Male
  Weight: 70.5 kg

DRUGS (6)
  1. VALPROATE SODIUM [Suspect]
     Indication: CONVULSION
     Route: 048
  2. VALPROATE SODIUM [Suspect]
     Route: 048
  3. CLONAZEPAM [Concomitant]
     Indication: PRODUCT USED FOR UNKNOWN INDICATION
     Route: 048
  4. PHENOBARBITAL [Concomitant]
     Indication: PRODUCT USED FOR UNKNOWN INDICATION
     Route: 048
  5. PHENOBARBITAL [Concomitant]
     Indication: PRODUCT USED FOR UNKNOWN INDICATION
     Route: 048
  6. PHENYTOIN [Concomitant]
     Indication: PRODUCT USED FOR UNKNOWN INDICATION
     Route: 048

REACTIONS (18)
  - Metabolic acidosis [Fatal]
  - Pancreatitis [Fatal]
  - Acute hepatic failure [Fatal]
  - Aspartate aminotransferase increased [Fatal]
  - Alanine aminotransferase increased [Fatal]
  - Gamma-glutamyltransferase increased [Fatal]
  - Blood alkaline phosphatase increased [Fatal]
  - Amylase increased [Fatal]
  - Blood bilirubin increased [Fatal]
  - Abdominal pain upper [Fatal]
  - Ascites [Fatal]
  - Jaundice [Fatal]
  - Hepatic steatosis [Fatal]
  - Coagulopathy [Fatal]
  - Prothrombin time prolonged [Fatal]
  - Blood fibrinogen decreased [Fatal]
  - Prothrombin level decreased [Fatal]
  - Thrombin time prolonged [Fatal]
